FAERS Safety Report 9538901 (Version 1)
Quarter: 2013Q3

REPORT INFORMATION
  Report Type: Spontaneous
  Country: GB (occurrence: GB)
  Receive Date: 20130920
  Receipt Date: 20130920
  Transmission Date: 20140515
  Serious: Yes (Hospitalization)
  Sender: FDA-Public Use
  Company Number: GB-JNJFOC-20130909255

PATIENT
  Age: 56 Year
  Sex: Female

DRUGS (3)
  1. XEPLION [Suspect]
     Indication: PRODUCT USED FOR UNKNOWN INDICATION
     Route: 030
  2. XEPLION [Suspect]
     Indication: PRODUCT USED FOR UNKNOWN INDICATION
     Route: 030
  3. MIRTAZAPINE [Concomitant]
     Route: 065

REACTIONS (4)
  - Psychotic disorder [Unknown]
  - Parkinsonism [Unknown]
  - Tearfulness [Unknown]
  - Blood prolactin increased [Unknown]
